FAERS Safety Report 4643279-3 (Version None)
Quarter: 2005Q2

REPORT INFORMATION
  Report Type: 
  Country: None (occurrence: None)
  Receive Date: 20050421
  Receipt Date: 20050401
  Transmission Date: 20051028
  Serious: Yes (Hospitalization, Other)
  Sender: FDA-Public Use
  Company Number: 2005054567

PATIENT
  Age: 88 Year
  Sex: Female
  Weight: 56.6996 kg

DRUGS (7)
  1. NORVASC [Suspect]
     Indication: CARDIAC DISORDER
     Dosage: 10 MG (10 MG, 1 IN 1 D), ORAL; ABOUT 1 YEAR AGO
     Route: 048
  2. NORVASC [Suspect]
     Indication: HYPERTENSION
     Dosage: 10 MG (10 MG, 1 IN 1 D), ORAL; ABOUT 1 YEAR AGO
     Route: 048
  3. LOSARTAN POTASSIUM [Concomitant]
  4. CLOPIDOGREL BISULFATE [Concomitant]
  5. METOPROLOL TARTRATE [Concomitant]
  6. FUROSEMIDE [Concomitant]
  7. ASPIRIN [Concomitant]

REACTIONS (4)
  - ARTHRITIS [None]
  - CHONDROPATHY [None]
  - MYOCARDIAL INFARCTION [None]
  - OSTEOPOROSIS [None]
